FAERS Safety Report 25793735 (Version 1)
Quarter: 2025Q3

REPORT INFORMATION
  Report Type: Spontaneous
  Country: US (occurrence: US)
  Receive Date: 20250912
  Receipt Date: 20250912
  Transmission Date: 20251020
  Serious: No
  Sender: IPSEN BIOPHARMACEUTICALS, INC.
  Company Number: US-IPSEN Group, Research and Development-2025-22321

PATIENT
  Sex: Female

DRUGS (1)
  1. IQIRVO [Suspect]
     Active Substance: ELAFIBRANOR
     Indication: Product used for unknown indication
     Dosage: 80 MG: TAKE 1 TABLET BY MOUTH EVERY DAY
     Route: 048
     Dates: start: 20250426

REACTIONS (3)
  - Constipation [Unknown]
  - Fatigue [Unknown]
  - Product dose omission issue [Unknown]
